FAERS Safety Report 7847222 (Version 2)
Quarter: 2013Q2

REPORT INFORMATION
  Report Type: Spontaneous
  Country: GB (occurrence: GB)
  Receive Date: 20110309
  Receipt Date: 20130408
  Transmission Date: 20140414
  Serious: Yes (Other)
  Sender: FDA-Public Use
  Company Number: GB-RANBAXY-2011R1-42010

PATIENT
  Sex: Female

DRUGS (2)
  1. SUMATRIPTAN [Suspect]
     Indication: HEADACHE
     Dosage: UNK
     Route: 048
  2. DIPYRIDAMOLE [Suspect]
     Indication: PRODUCT USED FOR UNKNOWN INDICATION
     Dosage: UNK
     Route: 065

REACTIONS (6)
  - Thrombocytopenia [Recovering/Resolving]
  - Nausea [Unknown]
  - Pyrexia [Unknown]
  - Paraesthesia [Not Recovered/Not Resolved]
  - Muscular weakness [Recovering/Resolving]
  - Ischaemic stroke [Recovering/Resolving]
